FAERS Safety Report 22291455 (Version 1)
Quarter: 2023Q2

REPORT INFORMATION
  Report Type: Spontaneous
  Country: CN (occurrence: CN)
  Receive Date: 20230506
  Receipt Date: 20230506
  Transmission Date: 20230721
  Serious: Yes (Other)
  Sender: FDA-Public Use
  Company Number: CN-002147023-NVSC2023CN099415

PATIENT
  Age: 49 Year
  Sex: Male
  Weight: 60 kg

DRUGS (4)
  1. AMOXICILLIN\CLAVULANATE POTASSIUM [Suspect]
     Active Substance: AMOXICILLIN\CLAVULANATE POTASSIUM
     Indication: Skin infection
     Dosage: 2 DOSAGE FORM, BID
     Route: 048
     Dates: start: 20230405, end: 20230407
  2. ACETAMINOPHEN\DIHYDROCODEINE BITARTRATE [Concomitant]
     Active Substance: ACETAMINOPHEN\DIHYDROCODEINE BITARTRATE
     Indication: Skin infection
     Dosage: 2 DOSAGE FORM, QID
     Route: 048
     Dates: start: 20230405, end: 20230407
  3. METHYLCOBALAMIN [Concomitant]
     Active Substance: METHYLCOBALAMIN
     Indication: Skin infection
     Dosage: 2 DOSAGE FORM, QD
     Route: 048
     Dates: start: 20230405, end: 20230407
  4. ZYRTEC [Concomitant]
     Active Substance: CETIRIZINE HYDROCHLORIDE
     Indication: Skin infection
     Dosage: 1 DOSAGE FORM, QD
     Route: 048
     Dates: start: 20230407, end: 20230415

REACTIONS (7)
  - Ophthalmic herpes zoster [Unknown]
  - Pruritus [Recovered/Resolved]
  - Eye swelling [Unknown]
  - Discomfort [Unknown]
  - Rash macular [Recovered/Resolved]
  - Drug eruption [Recovering/Resolving]
  - Rash [Unknown]

NARRATIVE: CASE EVENT DATE: 20230407
